FAERS Safety Report 9380911 (Version 2)
Quarter: 2015Q1

REPORT INFORMATION
  Report Type: Report from Study
  Country: US (occurrence: US)
  Receive Date: 20130703
  Receipt Date: 20150319
  Transmission Date: 20150721
  Serious: Yes (Death)
  Sender: FDA-Public Use
  Company Number: US-ROCHE-1244184

PATIENT
  Sex: Female

DRUGS (12)
  1. TAXOL [Concomitant]
     Active Substance: PACLITAXEL
  2. MORPHINE SULPHATE DRIP [Concomitant]
     Route: 042
  3. AVASTIN [Suspect]
     Active Substance: BEVACIZUMAB
     Indication: FALLOPIAN TUBE CANCER
     Dosage: THE PATIENT RECIEVED THE SAME DOSE ON: 18/JUL/2012, 01/AUG/2012, 15/AUG/2012, 29/AUG/2012, 12/SEP/20
     Route: 042
     Dates: start: 201108
  4. ZOFRAN [Concomitant]
     Active Substance: ONDANSETRON HYDROCHLORIDE
     Route: 048
  5. FLECAINIDE [Concomitant]
     Active Substance: FLECAINIDE
  6. CARBOPLATIN. [Concomitant]
     Active Substance: CARBOPLATIN
  7. EMEND [Concomitant]
     Active Substance: APREPITANT
     Route: 042
  8. MARINOL (UNITED STATES) [Concomitant]
  9. DECADRON [Concomitant]
     Active Substance: DEXAMETHASONE
     Route: 042
  10. DOXIL [Concomitant]
     Active Substance: DOXORUBICIN HYDROCHLORIDE
  11. VIVELLE [Concomitant]
     Active Substance: ESTRADIOL
     Route: 061
  12. GEMZAR [Concomitant]
     Active Substance: GEMCITABINE HYDROCHLORIDE

REACTIONS (2)
  - Off label use [Unknown]
  - Death [Fatal]
